FAERS Safety Report 10060238 (Version 1)
Quarter: 2014Q2

REPORT INFORMATION
  Report Type: Spontaneous
  Country: SG (occurrence: SG)
  Receive Date: 20140404
  Receipt Date: 20140404
  Transmission Date: 20141212
  Serious: Yes (Hospitalization)
  Sender: FDA-Public Use
  Company Number: PHHY2014SG036345

PATIENT
  Age: 76 Year
  Sex: Female

DRUGS (2)
  1. METFORMIN [Suspect]
     Indication: TYPE 2 DIABETES MELLITUS
     Dosage: 1 G, TID
  2. METFORMIN [Suspect]
     Dosage: 500 MG, TID, OVER THE LAST 7 YEARS

REACTIONS (9)
  - Myelodysplastic syndrome [Unknown]
  - Pancytopenia [Unknown]
  - Platelet count decreased [Unknown]
  - Neutrophil hypersegmented morphology present [Unknown]
  - Neutrophil count decreased [Unknown]
  - Blood folate decreased [Unknown]
  - Vitamin B12 deficiency [Recovered/Resolved]
  - Anaemia macrocytic [Unknown]
  - Haemoglobin decreased [Recovered/Resolved]
